FAERS Safety Report 7883260-4 (Version None)
Quarter: 2011Q4

REPORT INFORMATION
  Report Type: 
  Country: None (occurrence: None)
  Receive Date: 20111031
  Receipt Date: 20111026
  Transmission Date: 20120403
  Serious: No
  Sender: FDA-Public Use
  Company Number: ACO_27300_2011

PATIENT
  Age: 56 Year
  Sex: Female

DRUGS (2)
  1. TYSABRI [Concomitant]
  2. 4-AP (FAMPRIDINE) TABLET, 10MG [Suspect]
     Indication: MULTIPLE SCLEROSIS
     Dates: end: 20110101

REACTIONS (3)
  - CONVULSION [None]
  - SKIN DISCOLOURATION [None]
  - ASTHENIA [None]
